FAERS Safety Report 4336790-6 (Version None)
Quarter: 2004Q2

REPORT INFORMATION
  Report Type: 
  Country: None (occurrence: None)
  Receive Date: 20040408
  Receipt Date: 20040329
  Transmission Date: 20050107
  Serious: Yes (Other)
  Sender: FDA-Public Use
  Company Number: ZONI001362

PATIENT
  Age: 50 Year
  Sex: Female

DRUGS (1)
  1. ZONEGRAN [Suspect]
     Indication: NEUROPATHIC PAIN
     Dosage: ORAL
     Route: 048
     Dates: start: 20020101, end: 20020101

REACTIONS (1)
  - PERIPHERAL SENSORY NEUROPATHY [None]
